FAERS Safety Report 23242388 (Version 1)
Quarter: 2023Q4

REPORT INFORMATION
  Report Type: Spontaneous
  Country: CN (occurrence: CN)
  Receive Date: 20231129
  Receipt Date: 20231129
  Transmission Date: 20240110
  Serious: Yes (Other)
  Sender: FDA-Public Use
  Company Number: CN-PFIZER INC-PV202300192591

PATIENT
  Age: 2 Year
  Sex: Male
  Weight: 10 kg

DRUGS (3)
  1. METHOTREXATE SODIUM [Suspect]
     Active Substance: METHOTREXATE SODIUM
     Indication: Chemotherapy
     Dosage: 33 ML, 1X/DAY
     Route: 041
     Dates: start: 20231111, end: 20231112
  2. SODIUM CHLORIDE [Concomitant]
     Active Substance: SODIUM CHLORIDE
     Indication: Vehicle solution use
     Dosage: 25 ML, 1X/DAY
     Route: 041
     Dates: start: 20231111, end: 20231112
  3. SODIUM CHLORIDE [Concomitant]
     Active Substance: SODIUM CHLORIDE
     Indication: Vehicle solution use
     Dosage: 500 ML, 1X/DAY
     Route: 041
     Dates: start: 20231111, end: 20231112

REACTIONS (1)
  - Keratolysis exfoliativa acquired [Recovering/Resolving]

NARRATIVE: CASE EVENT DATE: 20231113
